FAERS Safety Report 6664136-7 (Version None)
Quarter: 2010Q2

REPORT INFORMATION
  Report Type: 
  Country: None (occurrence: None)
  Receive Date: 20100401
  Receipt Date: 20100325
  Transmission Date: 20101027
  Serious: Yes (Hospitalization)
  Sender: FDA-Public Use
  Company Number: B0642987A

PATIENT
  Sex: Male

DRUGS (14)
  1. VENTOLIN [Suspect]
     Indication: ASTHMATIC CRISIS
     Route: 055
     Dates: start: 20091204
  2. BRICANYL [Suspect]
     Indication: ASTHMATIC CRISIS
     Route: 055
     Dates: start: 20091204, end: 20091205
  3. ATROVENT [Concomitant]
     Indication: ASTHMATIC CRISIS
     Route: 055
     Dates: start: 20091204, end: 20091205
  4. SERETIDE DISKUS [Concomitant]
     Indication: ASTHMA
     Route: 055
  5. NISIS [Concomitant]
     Indication: DRUG USE FOR UNKNOWN INDICATION
     Route: 065
  6. HEXAQUINE [Concomitant]
     Indication: DRUG USE FOR UNKNOWN INDICATION
     Route: 065
  7. DOLIPRANE [Concomitant]
     Indication: DRUG USE FOR UNKNOWN INDICATION
     Dosage: 1G AS REQUIRED
     Route: 065
  8. DOGMATIL [Concomitant]
     Indication: DRUG USE FOR UNKNOWN INDICATION
     Dosage: 50MG THREE TIMES PER DAY
     Route: 065
  9. LEXOMIL [Concomitant]
     Indication: DRUG USE FOR UNKNOWN INDICATION
     Dosage: 6MG THREE TIMES PER DAY
     Route: 065
  10. NEXIUM [Concomitant]
     Indication: DRUG USE FOR UNKNOWN INDICATION
     Dosage: 40MG PER DAY
     Route: 065
  11. SERTRALINE HCL [Concomitant]
     Indication: DRUG USE FOR UNKNOWN INDICATION
     Dosage: 50MG IN THE MORNING
     Route: 065
  12. XYZAL [Concomitant]
     Indication: DRUG USE FOR UNKNOWN INDICATION
     Route: 065
  13. SOLU-MEDROL [Concomitant]
     Indication: ASTHMATIC CRISIS
     Dosage: 120MG SINGLE DOSE
     Route: 042
     Dates: start: 20091204
  14. SOLUPRED [Concomitant]
     Indication: ASTHMATIC CRISIS
     Route: 048
     Dates: start: 20091101

REACTIONS (3)
  - BRADYPNOEA [None]
  - LACTIC ACIDOSIS [None]
  - RALES [None]
